FAERS Safety Report 7679473-7 (Version None)
Quarter: 2011Q3

REPORT INFORMATION
  Report Type: 
  Country: None (occurrence: None)
  Receive Date: 20110812
  Receipt Date: 20110812
  Transmission Date: 20111222
  Serious: Yes (Disabling)
  Sender: FDA-Public Use
  Company Number: None

PATIENT
  Age: 64 Year
  Sex: Male
  Weight: 85 kg

DRUGS (1)
  1. TOBRAMYCIN [Suspect]
     Indication: RESPIRATORY TRACT INFECTION
     Dosage: 300MG
     Route: 050
     Dates: start: 20110429, end: 20110505

REACTIONS (3)
  - RESPIRATORY FAILURE [None]
  - RENAL FAILURE [None]
  - DIABETIC NEPHROPATHY [None]
